FAERS Safety Report 21619300 (Version 1)
Quarter: 2022Q4

REPORT INFORMATION
  Report Type: Spontaneous
  Country: BR (occurrence: BR)
  Receive Date: 20221120
  Receipt Date: 20221120
  Transmission Date: 20230113
  Serious: Yes (Other)
  Sender: FDA-Public Use
  Company Number: BR-Accord-286842

PATIENT
  Age: 68 Year
  Sex: Female
  Weight: 101.4 kg

DRUGS (1)
  1. PACLITAXEL [Suspect]
     Active Substance: PACLITAXEL
     Indication: Breast cancer
     Route: 042
     Dates: start: 20221014, end: 20221014

REACTIONS (7)
  - Flushing [Recovered/Resolved]
  - Hyperaemia [Recovered/Resolved]
  - Rash [Recovered/Resolved]
  - Dyspnoea [Recovered/Resolved]
  - Hypoxia [Recovered/Resolved]
  - Respiratory distress [Recovered/Resolved]
  - Oxygen saturation decreased [Recovered/Resolved]

NARRATIVE: CASE EVENT DATE: 20221014
